FAERS Safety Report 4563988-4 (Version None)
Quarter: 2005Q1

REPORT INFORMATION
  Report Type: 
  Country: None (occurrence: None)
  Receive Date: 20050121
  Receipt Date: 20050110
  Transmission Date: 20050727
  Serious: Yes (Hospitalization)
  Sender: FDA-Public Use
  Company Number: 05H-082-0286103-00

PATIENT
  Sex: 0

DRUGS (6)
  1. LEUCOROVIRN CALCIUM INJECTION (LEUCOVORIN) [Suspect]
     Indication: CHEMOTHERAPY
     Dosage: 20 MG.M2, WEEKLY FOR 4 WEEKS EVERY 6 WEEKS, INTRAVENOUS
     Route: 042
  2. IRINOTECAN HCL [Suspect]
     Indication: CHEMOTHERAPY
     Dosage: 125 MG/M2, WEEKLY FOR 4 WEEKS EVERY 6 WEEKS, INTRAVENOUS
     Route: 042
  3. FLUOROURACIL [Suspect]
     Indication: CHEMOTHERAPY
     Dosage: 500 MG/M2,   WEEKLY  FOR 4 WEEKS EVERY 6 WEEKS, INTRAVENOUS
     Route: 042
  4. ATROPINE [Concomitant]
  5. LOPRAMIDE [Concomitant]
  6. ANTIEMETICS AND ANTINAUSEANTS [Concomitant]

REACTIONS (1)
  - FEBRILE NEUTROPENIA [None]
